FAERS Safety Report 10037491 (Version 1)
Quarter: 2014Q1

REPORT INFORMATION
  Report Type: Spontaneous
  Country: US (occurrence: US)
  Receive Date: 20140326
  Receipt Date: 20140326
  Transmission Date: 20141002
  Serious: Yes (Other)
  Sender: FDA-Public Use
  Company Number: US-BAYER-2014-040801

PATIENT
  Age: 57 Year
  Sex: Female
  Weight: 68 kg

DRUGS (1)
  1. ALEVE TABLET [Suspect]
     Indication: PAIN
     Dosage: 1 DF, ONCE
     Route: 048
     Dates: start: 20140311, end: 20140311

REACTIONS (11)
  - Hypersensitivity [None]
  - Pharyngeal oedema [None]
  - Chest discomfort [None]
  - Urticaria [None]
  - Palpitations [None]
  - Balance disorder [None]
  - Dyspnoea [None]
  - Tinnitus [None]
  - Vomiting [None]
  - Pruritus generalised [None]
  - Tremor [None]
